FAERS Safety Report 18109525 (Version 1)
Quarter: 2020Q3

REPORT INFORMATION
  Report Type: Report from Study
  Country: US (occurrence: US)
  Receive Date: 20200804
  Receipt Date: 20200804
  Transmission Date: 20201103
  Serious: Yes (Other)
  Sender: FDA-Public Use
  Company Number: US-ASTRAZENECA-2020SE93178

PATIENT
  Age: 56 Year

DRUGS (2)
  1. DURVALUMAB. [Suspect]
     Active Substance: DURVALUMAB
     Indication: NON-SMALL CELL LUNG CANCER STAGE IIIA
     Dosage: 10 MG/KG EVERY TWO WEEKS
     Route: 042
  2. CISPLATIN/ETOPOSIDE [Interacting]
     Active Substance: CISPLATIN\ETOPOSIDE
     Indication: NON-SMALL CELL LUNG CANCER STAGE IIIA
     Route: 065

REACTIONS (2)
  - Radiation interaction [Recovered/Resolved]
  - Radiation pneumonitis [Recovering/Resolving]
